FAERS Safety Report 8798681 (Version 4)
Quarter: 2012Q4

REPORT INFORMATION
  Report Type: Report from Study
  Country: ES (occurrence: ES)
  Receive Date: 20120920
  Receipt Date: 20121017
  Transmission Date: 20130627
  Serious: Yes (Other)
  Sender: FDA-Public Use
  Company Number: ES-GLAXOSMITHKLINE-B0831595A

PATIENT
  Age: 54 Year
  Sex: Female
  Weight: 54 kg

DRUGS (6)
  1. OFATUMUMAB [Suspect]
     Indication: CHRONIC LYMPHOCYTIC LEUKAEMIA
     Route: 042
     Dates: start: 20120824, end: 20120908
  2. MELPHALAN [Concomitant]
     Indication: CHRONIC LYMPHOCYTIC LEUKAEMIA
     Dosage: 109MG Per day
     Route: 048
     Dates: start: 20120910, end: 20120911
  3. FLUDARABINE [Concomitant]
     Indication: CHRONIC LYMPHOCYTIC LEUKAEMIA
     Dosage: 47MG Per day
     Route: 042
     Dates: start: 20120906, end: 20120910
  4. CYCLOSPORINE [Concomitant]
     Indication: GRAFT VERSUS HOST DISEASE
     Dosage: 160MG Per day
     Route: 042
     Dates: start: 20120911
  5. FLUCONAZOLE [Concomitant]
     Indication: PROPHYLAXIS
     Dosage: 400MG Per day
     Route: 048
     Dates: start: 20120905
  6. ANTITHYMOCYTE GLOBULIN [Concomitant]
     Indication: GRAFT VERSUS HOST DISEASE
     Dosage: 108MG Per day
     Route: 042
     Dates: start: 20120906, end: 20120909

REACTIONS (1)
  - Hepatitis [Recovering/Resolving]
